FAERS Safety Report 13394797 (Version 1)
Quarter: 2017Q2

REPORT INFORMATION
  Report Type: Report from Study
  Country: DK (occurrence: DK)
  Receive Date: 20170403
  Receipt Date: 20170403
  Transmission Date: 20170830
  Serious: Yes (Other)
  Sender: FDA-Public Use
  Company Number: DK-ACCORD-049697

PATIENT
  Age: 16 Year
  Sex: Male

DRUGS (2)
  1. OXAZEPAM. [Concomitant]
     Active Substance: OXAZEPAM
     Route: 065
  2. QUETIAPINE. [Suspect]
     Active Substance: QUETIAPINE
     Indication: TRISOMY 21
     Route: 065

REACTIONS (3)
  - Hyperprolactinaemia [Unknown]
  - Off label use [Unknown]
  - Hyperthyroidism [Unknown]
